FAERS Safety Report 4360157-8 (Version None)
Quarter: 2004Q2

REPORT INFORMATION
  Report Type: 
  Country: None (occurrence: None)
  Receive Date: 20040513
  Receipt Date: 20040428
  Transmission Date: 20050107
  Serious: Yes (Other)
  Sender: FDA-Public Use
  Company Number: S03-USA-04750-01

PATIENT
  Age: 17 Year
  Sex: Female
  Weight: 70.3075 kg

DRUGS (4)
  1. LEXAPRO [Suspect]
     Indication: DEPRESSION
     Dosage: 20 MG QD PO
     Route: 048
     Dates: start: 20030811, end: 20030925
  2. CELEXA [Concomitant]
  3. ORTHO TRI-CYCLEN [Concomitant]
  4. LEVLITE [Concomitant]

REACTIONS (8)
  - BLEEDING TIME PROLONGED [None]
  - COAGULATION FACTOR VIII LEVEL INCREASED [None]
  - DRUG EFFECT DECREASED [None]
  - IRON DEFICIENCY ANAEMIA [None]
  - LEUKOPENIA [None]
  - MENORRHAGIA [None]
  - VAGINAL HAEMORRHAGE [None]
  - WHITE BLOOD CELL COUNT DECREASED [None]
